FAERS Safety Report 10549508 (Version 2)
Quarter: 2015Q2

REPORT INFORMATION
  Report Type: Spontaneous
  Country: US (occurrence: None)
  Receive Date: 20141020
  Receipt Date: 20150420
  Transmission Date: 20150821
  Serious: No
  Sender: FDA-Public Use
  Company Number: AEGR000677

PATIENT
  Age: 63 Year
  Sex: Female
  Weight: 77.1 kg

DRUGS (11)
  1. FUROSEMIDE. [Concomitant]
     Active Substance: FUROSEMIDE
  2. JANUMET [Suspect]
     Active Substance: METFORMIN HYDROCHLORIDE\SITAGLIPTIN PHOSPHATE
     Indication: PRODUCT USED FOR UNKNOWN INDICATION
     Route: 048
     Dates: start: 201407
  3. POTASSIUM CHLORIDE. [Concomitant]
     Active Substance: POTASSIUM CHLORIDE
  4. FISH OIL [Concomitant]
     Active Substance: FISH OIL
  5. CO Q-10 (UBIDECARENONE) [Concomitant]
  6. VITAMIN E (TOCOPHERYL ACID SUCCINATE) [Concomitant]
  7. OMEGA 3-6-9 (FISH OIL, TOCOPHEROL) [Concomitant]
  8. JUXTAPID [Suspect]
     Active Substance: LOMITAPIDE MESYLATE
     Indication: BLOOD CHOLESTEROL INCREASED
     Route: 048
     Dates: start: 201410, end: 201412
  9. ALLOPURINOL. [Concomitant]
     Active Substance: ALLOPURINOL
  10. CARVEDILOL. [Concomitant]
     Active Substance: CARVEDILOL
  11. CLOPIDOGREL [Concomitant]
     Active Substance: CLOPIDOGREL BISULFATE

REACTIONS (7)
  - Insomnia [None]
  - Off label use [None]
  - Myalgia [None]
  - Arthralgia [None]
  - Feeling abnormal [None]
  - Rash [None]
  - Pruritus generalised [None]

NARRATIVE: CASE EVENT DATE: 2014
